FAERS Safety Report 5977738-8 (Version None)
Quarter: 2008Q4

REPORT INFORMATION
  Report Type: 
  Country: None (occurrence: None)
  Receive Date: 20081203
  Receipt Date: 20081124
  Transmission Date: 20090506
  Serious: Yes (Hospitalization, Disabling)
  Sender: FDA-Public Use
  Company Number: DK-ASTRAZENECA-2008SE05171

PATIENT
  Sex: Female
  Weight: 6.4 kg

DRUGS (2)
  1. OMEPRAZOLE [Suspect]
     Indication: EATING DISORDER
     Route: 048
     Dates: end: 20080801
  2. LAKTULOSE [Concomitant]
     Indication: CONSTIPATION
     Route: 048

REACTIONS (5)
  - CONGENITAL ANOMALY [None]
  - FAILURE TO THRIVE [None]
  - FATIGUE [None]
  - GROWTH RETARDATION [None]
  - SOMNOLENCE [None]
